FAERS Safety Report 9387569 (Version 1)
Quarter: 2013Q3

REPORT INFORMATION
  Report Type: Spontaneous
  Country: FR (occurrence: FR)
  Receive Date: 20130708
  Receipt Date: 20130708
  Transmission Date: 20140515
  Serious: Yes (Hospitalization)
  Sender: FDA-Public Use
  Company Number: FR-JNJFOC-20130616842

PATIENT
  Age: 89 Year
  Sex: Female

DRUGS (7)
  1. DUROGESIC [Suspect]
     Indication: OSTEOARTHRITIS
     Route: 062
     Dates: end: 20121015
  2. ACTISKENAN [Suspect]
     Indication: OSTEOARTHRITIS
     Route: 048
     Dates: start: 20121015, end: 20121017
  3. LASILIX [Concomitant]
     Indication: PRODUCT USED FOR UNKNOWN INDICATION
     Route: 048
  4. NOVONORM [Concomitant]
     Indication: PRODUCT USED FOR UNKNOWN INDICATION
     Route: 048
  5. LANTUS [Concomitant]
     Indication: PRODUCT USED FOR UNKNOWN INDICATION
     Route: 058
  6. DOLIPRANE [Concomitant]
     Indication: PRODUCT USED FOR UNKNOWN INDICATION
     Route: 065
  7. OXYGEN [Concomitant]
     Route: 065

REACTIONS (1)
  - Coma [Recovered/Resolved]
